FAERS Safety Report 5933634-3 (Version None)
Quarter: 2008Q4

REPORT INFORMATION
  Report Type: 
  Country: None (occurrence: None)
  Receive Date: 20081024
  Receipt Date: 20080918
  Transmission Date: 20090506
  Serious: Yes (Hospitalization)
  Sender: FDA-Public Use
  Company Number: 2008S1013124

PATIENT
  Age: 81 Year
  Sex: Male

DRUGS (10)
  1. OMEPRAZOLE [Suspect]
     Indication: DRUG USE FOR UNKNOWN INDICATION
     Dosage: 40 MG; DAILY; ORAL
     Route: 048
  2. AMLODIPINE [Concomitant]
  3. ASPIRIN [Concomitant]
  4. ATENOLOL [Concomitant]
  5. ATORVASTATIN CALCIUM [Concomitant]
  6. ISOSORSIDE MONONITRATE [Concomitant]
  7. LISINOPRIL [Concomitant]
  8. OLMESARTAN MEDOXOMIL [Concomitant]
  9. QUININE [Concomitant]
  10. TRIMETHOPRIM [Concomitant]

REACTIONS (17)
  - ATRIAL FLUTTER [None]
  - BALANCE DISORDER [None]
  - BLOOD PHOSPHORUS DECREASED [None]
  - BLOOD POTASSIUM INCREASED [None]
  - BRADYCARDIA [None]
  - C-REACTIVE PROTEIN INCREASED [None]
  - GAIT DISTURBANCE [None]
  - HYPOCALCAEMIA [None]
  - HYPOKALAEMIA [None]
  - HYPOMAGNESAEMIA [None]
  - HYPOTENSION [None]
  - MUSCLE SPASMS [None]
  - NAUSEA [None]
  - PARAESTHESIA [None]
  - POLYURIA [None]
  - URINARY INCONTINENCE [None]
  - VOMITING [None]
